FAERS Safety Report 25393748 (Version 1)
Quarter: 2025Q2

REPORT INFORMATION
  Report Type: Spontaneous
  Country: BR (occurrence: BR)
  Receive Date: 20250604
  Receipt Date: 20250604
  Transmission Date: 20250716
  Serious: Yes (Other)
  Sender: ROCHE
  Company Number: BR-ROCHE-10000299383

PATIENT
  Age: 41 Year
  Sex: Male

DRUGS (1)
  1. OCRELIZUMAB [Suspect]
     Active Substance: OCRELIZUMAB
     Indication: Multiple sclerosis
     Route: 065
     Dates: start: 2023

REACTIONS (1)
  - Expanded disability status scale score increased [Unknown]
